FAERS Safety Report 8999317 (Version 1)
Quarter: 2013Q1

REPORT INFORMATION
  Report Type: Spontaneous
  Country: FR (occurrence: FR)
  Receive Date: 20130103
  Receipt Date: 20130103
  Transmission Date: 20140127
  Serious: Yes (Hospitalization)
  Sender: FDA-Public Use
  Company Number: FR-ASTRAZENECA-2012SE95446

PATIENT
  Age: 72 Year
  Sex: Female

DRUGS (5)
  1. CARBOCAINE [Suspect]
     Indication: LOCAL ANAESTHESIA
     Route: 042
     Dates: start: 20121011, end: 20121011
  2. PERFALGAN [Suspect]
     Indication: ANALGESIC THERAPY
     Route: 042
     Dates: start: 20121011, end: 20121011
  3. MIDAZOLAM [Suspect]
     Indication: SEDATION
     Route: 042
     Dates: start: 20121011, end: 20121011
  4. CEFAMANDOL [Suspect]
     Indication: ANTIBIOTIC PROPHYLAXIS
     Route: 042
     Dates: start: 20121011, end: 20121011
  5. KETAMINE [Suspect]
     Indication: GENERAL ANAESTHESIA
     Route: 042
     Dates: start: 20121011, end: 20121011

REACTIONS (2)
  - Pruritus [Recovered/Resolved]
  - Erythema [Recovered/Resolved]
